FAERS Safety Report 9746614 (Version 1)
Quarter: 2013Q4

REPORT INFORMATION
  Report Type: Report from Study
  Country: US (occurrence: US)
  Receive Date: 20131211
  Receipt Date: 20131211
  Transmission Date: 20140711
  Serious: Yes (Hospitalization, Other)
  Sender: FDA-Public Use
  Company Number: US-ABBVIE-13P-163-1176630-00

PATIENT
  Age: 59 Year
  Sex: Male
  Weight: 74.91 kg

DRUGS (6)
  1. CREON [Suspect]
     Indication: PANCREATITIS CHRONIC
     Dates: start: 2000
  2. ZOFRAN [Concomitant]
     Indication: NAUSEA
  3. BUMEX [Concomitant]
     Indication: FLUID RETENTION
  4. REGLAN [Concomitant]
     Indication: IMPAIRED GASTRIC EMPTYING
  5. MS CONTIN [Concomitant]
     Indication: ABDOMINAL PAIN
  6. OPANA [Concomitant]
     Indication: BREAKTHROUGH PAIN

REACTIONS (5)
  - Meningitis [Recovered/Resolved]
  - Sensory loss [Recovered/Resolved]
  - Decreased appetite [Not Recovered/Not Resolved]
  - Asthenia [Not Recovered/Not Resolved]
  - Diarrhoea [Not Recovered/Not Resolved]
